FAERS Safety Report 4686044-3 (Version None)
Quarter: 2005Q2

REPORT INFORMATION
  Report Type: 
  Country: None (occurrence: None)
  Receive Date: 20050609
  Receipt Date: 20050527
  Transmission Date: 20051028
  Serious: Yes (Death, Hospitalization, Other)
  Sender: FDA-Public Use
  Company Number: DE-BRISTOL-MYERS SQUIBB COMPANY-12985511

PATIENT
  Age: 58 Year
  Sex: Female

DRUGS (7)
  1. CISPLATIN [Suspect]
     Indication: SMALL CELL LUNG CANCER STAGE UNSPECIFIED
     Route: 042
     Dates: start: 20050418, end: 20050418
  2. TOPOTECAN HCL [Suspect]
     Indication: SMALL CELL LUNG CANCER STAGE UNSPECIFIED
     Route: 042
     Dates: start: 20050414, end: 20050418
  3. FORTECORTIN [Concomitant]
  4. PANTOPRAZOLE SODIUM [Concomitant]
  5. CAPTOPRIL [Concomitant]
  6. ACE INHIBITOR [Concomitant]
  7. NYSTATIN [Concomitant]

REACTIONS (6)
  - ANAEMIA [None]
  - ANGIONEUROTIC OEDEMA [None]
  - HAEMATOTOXICITY [None]
  - NEUTROPENIA [None]
  - SEPSIS [None]
  - THROMBOCYTOPENIA [None]
